FAERS Safety Report 16759786 (Version 1)
Quarter: 2019Q3

REPORT INFORMATION
  Report Type: Report from Study
  Country: JP (occurrence: JP)
  Receive Date: 20190830
  Receipt Date: 20190830
  Transmission Date: 20191005
  Serious: Yes (Hospitalization, Other)
  Sender: FDA-Public Use
  Company Number: JP-SA-2018SA290121

PATIENT
  Age: 58 Year
  Sex: Male

DRUGS (3)
  1. DARBEPOETIN ALFA RECOMBINANT [Suspect]
     Active Substance: DARBEPOETIN ALFA
     Dosage: UNK
     Dates: start: 20170407, end: 20171019
  2. DARBEPOETIN ALFA RECOMBINANT [Suspect]
     Active Substance: DARBEPOETIN ALFA
     Dosage: UNK
     Route: 042
     Dates: start: 20161230, end: 20170406
  3. SEVELAMER HYDROCHLORIDE. [Suspect]
     Active Substance: SEVELAMER HYDROCHLORIDE
     Dosage: UNK
     Route: 048
     Dates: start: 20150601

REACTIONS (6)
  - Intermittent claudication [Recovering/Resolving]
  - Metastatic neoplasm [Unknown]
  - Pain [Recovering/Resolving]
  - Pain [Recovering/Resolving]
  - Metastatic neoplasm [Recovering/Resolving]
  - Intermittent claudication [Recovering/Resolving]

NARRATIVE: CASE EVENT DATE: 20160414
